FAERS Safety Report 21767784 (Version 1)
Quarter: 2022Q4

REPORT INFORMATION
  Report Type: Spontaneous
  Country: US (occurrence: US)
  Receive Date: 20221222
  Receipt Date: 20221222
  Transmission Date: 20230112
  Serious: Yes (Other)
  Sender: FDA-Public Use
  Company Number: US-PROPHARMA-666

PATIENT
  Sex: Male

DRUGS (2)
  1. AYVAKIT [Suspect]
     Active Substance: AVAPRITINIB
     Indication: Haematopoietic neoplasm
     Dosage: 50MG EVERY OTHER DAY ALTERNATING WITH 100MG EVERY OTHER DAY
     Route: 065
     Dates: start: 20210724
  2. AYVAKIT [Suspect]
     Active Substance: AVAPRITINIB
     Dosage: 50MG EVERY OTHER DAY ALTERNATING WITH 100MG EVERY OTHER DAY
     Route: 065
     Dates: start: 20210724

REACTIONS (2)
  - COVID-19 [Unknown]
  - Off label use [Unknown]
